FAERS Safety Report 5444231-0 (Version None)
Quarter: 2007Q3

REPORT INFORMATION
  Report Type: 
  Country: None (occurrence: None)
  Receive Date: 20070904
  Receipt Date: 20070904
  Transmission Date: 20080115
  Serious: Yes (Death, Hospitalization)
  Sender: FDA-Public Use
  Company Number: None

PATIENT
  Sex: Female
  Weight: 63.5036 kg

DRUGS (3)
  1. ADRIAMYCIN PFS [Suspect]
     Indication: BREAST CANCER
  2. CYTOXAN [Suspect]
  3. TAXOTERE [Suspect]

REACTIONS (6)
  - ABDOMINAL PAIN [None]
  - CAECITIS [None]
  - COLITIS [None]
  - HYPERTENSION [None]
  - HYPOTENSION [None]
  - SEPSIS [None]
